FAERS Safety Report 19136358 (Version 2)
Quarter: 2024Q4

REPORT INFORMATION
  Report Type: Spontaneous
  Country: CA (occurrence: CA)
  Receive Date: 20210414
  Receipt Date: 20241223
  Transmission Date: 20250114
  Serious: Yes (Other)
  Sender: BAUSCH AND LOMB
  Company Number: CA-BAUSCH-BL-2021-012060

PATIENT
  Age: 75 Year
  Sex: Female

DRUGS (7)
  1. ALBUTEROL [Suspect]
     Active Substance: ALBUTEROL
     Indication: Asthma
     Dosage: NOT SPECIFIED
     Route: 065
  2. BUDESONIDE\FORMOTEROL FUMARATE [Suspect]
     Active Substance: BUDESONIDE\FORMOTEROL FUMARATE
     Indication: Product used for unknown indication
     Route: 055
  3. NUCALA [Suspect]
     Active Substance: MEPOLIZUMAB
     Indication: Product used for unknown indication
     Dosage: 6 ADMINISTRATIONS.
     Route: 042
  4. NUCALA [Suspect]
     Active Substance: MEPOLIZUMAB
     Indication: Asthma
  5. TIOTROPIUM BROMIDE [Suspect]
     Active Substance: TIOTROPIUM BROMIDE
     Indication: Asthma
     Route: 065
  6. SPIRIVA [Suspect]
     Active Substance: TIOTROPIUM BROMIDE MONOHYDRATE
     Indication: Asthma
     Dosage: NOT SPECIFIED
     Route: 065
  7. SYMBICORT [Suspect]
     Active Substance: BUDESONIDE\FORMOTEROL FUMARATE DIHYDRATE
     Indication: Product used for unknown indication
     Route: 055

REACTIONS (3)
  - Asthma [Unknown]
  - Hernia repair [Unknown]
  - Therapeutic response decreased [Unknown]
